FAERS Safety Report 10261232 (Version 7)
Quarter: 2015Q2

REPORT INFORMATION
  Report Type: Spontaneous
  Country: FR (occurrence: FR)
  Receive Date: 20140626
  Receipt Date: 20150526
  Transmission Date: 20150821
  Serious: Yes (Other)
  Sender: FDA-Public Use
  Company Number: FR-009507513-1404FRA004575

PATIENT
  Age: 25 Year
  Sex: Female
  Weight: 58 kg

DRUGS (1)
  1. IMPLANON [Suspect]
     Active Substance: ETONOGESTREL
     Indication: CONTRACEPTION
     Dosage: UNK, LEFT ARM
     Route: 058
     Dates: start: 201010

REACTIONS (17)
  - Surgery [Unknown]
  - Keloid scar [Not Recovered/Not Resolved]
  - Amenorrhoea [Recovered/Resolved]
  - Menorrhagia [Unknown]
  - Balance disorder [Unknown]
  - Adnexa uteri pain [Unknown]
  - Medical device complication [Not Recovered/Not Resolved]
  - Weight increased [Unknown]
  - Anxiety [Unknown]
  - Device difficult to use [Not Recovered/Not Resolved]
  - Dizziness [Unknown]
  - Menstruation delayed [Unknown]
  - Incorrect drug administration duration [Unknown]
  - Menstruation normal [Unknown]
  - Temperature intolerance [Unknown]
  - General anaesthesia [Unknown]
  - Ovarian cyst [Unknown]

NARRATIVE: CASE EVENT DATE: 201011
